FAERS Safety Report 6768212-X (Version None)
Quarter: 2010Q2

REPORT INFORMATION
  Report Type: 
  Country: None (occurrence: None)
  Receive Date: 20100614
  Receipt Date: 20100517
  Transmission Date: 20101027
  Serious: Yes (Hospitalization)
  Sender: FDA-Public Use
  Company Number: US-MERCK-1005USA02117

PATIENT
  Age: 58 Year
  Sex: Male
  Weight: 67 kg

DRUGS (7)
  1. DECADRON [Suspect]
     Dosage: 4MG DAILY (20 MG EVERY MONDAY)
     Route: 048
  2. XANAX [Concomitant]
     Route: 065
  3. LORTAB [Concomitant]
     Route: 065
  4. NEURONTIN [Concomitant]
     Route: 065
  5. VELCADE [Concomitant]
     Route: 065
  6. REVLIMID [Suspect]
     Indication: MULTIPLE MYELOMA
     Dosage: DAILY X 21 DAYS AND 7 DAYS OFF
     Route: 048
     Dates: start: 20070423, end: 20100109
  7. MORPHINE [Concomitant]
     Route: 065

REACTIONS (8)
  - ANAEMIA [None]
  - CANDIDIASIS [None]
  - HYPOCALCAEMIA [None]
  - HYPOMAGNESAEMIA [None]
  - PANCYTOPENIA [None]
  - PNEUMONIA [None]
  - RENAL FAILURE ACUTE [None]
  - VITAMIN D DEFICIENCY [None]
